FAERS Safety Report 4981559-2 (Version None)
Quarter: 2006Q2

REPORT INFORMATION
  Report Type: 
  Country: None (occurrence: None)
  Receive Date: 20060425
  Receipt Date: 20060413
  Transmission Date: 20061013
  Serious: Yes (Other)
  Sender: FDA-Public Use
  Company Number: US-JNJFOC-20060403348

PATIENT
  Age: 26 Year
  Sex: Female
  Weight: 109.77 kg

DRUGS (6)
  1. REMICADE [Suspect]
     Route: 042
  2. REMICADE [Suspect]
     Dosage: FIRST DOSE END OF FEB-06
     Route: 042
  3. THYROID REPLACEMENT [Concomitant]
     Indication: HYPOTHYROIDISM
  4. ANTIHYPERTENSIVE [Concomitant]
     Indication: FLUID RETENTION
  5. HYDROCHLOROTHIAZIDE [Concomitant]
     Indication: FLUID RETENTION
  6. STEROIDS [Concomitant]
     Dosage: DISCONTINUED ABOUT 2 MONTHS AGO

REACTIONS (2)
  - CELLULITIS [None]
  - MYOSITIS [None]
